FAERS Safety Report 8297572-6 (Version None)
Quarter: 2012Q2

REPORT INFORMATION
  Report Type: 
  Country: None (occurrence: None)
  Receive Date: 20120419
  Receipt Date: 20120411
  Transmission Date: 20120825
  Serious: Yes (Hospitalization)
  Sender: FDA-Public Use
  Company Number: US-CELGENEUS-163-21880-12041146

PATIENT
  Sex: Female
  Weight: 63.56 kg

DRUGS (11)
  1. TRICOR [Concomitant]
     Dosage: 40 MILLIGRAM
     Route: 065
  2. REVLIMID [Suspect]
     Indication: MULTIPLE MYELOMA
     Dosage: 5 MILLIGRAM
     Route: 048
     Dates: start: 20120113, end: 20120201
  3. CELEBREX [Concomitant]
     Dosage: 200 MILLIGRAM
     Route: 065
  4. CALCIUM + VITAMIN D [Concomitant]
     Route: 065
  5. MULTI-VITAMINS [Concomitant]
     Route: 065
  6. DEXAMETHASONE [Concomitant]
     Dosage: 5 MILLIGRAM
     Route: 048
  7. NAPROSYN [Concomitant]
     Route: 065
  8. VICODIN [Concomitant]
     Dosage: 5/500MG
     Route: 065
  9. METHYLPREDNISOLONE ACETATE [Concomitant]
     Dosage: 4 MILLIGRAM
     Route: 048
  10. GLUCOSAMINE CHONDROITIN [Concomitant]
     Route: 065
  11. METOPROLOL TARTRATE [Concomitant]
     Dosage: 25 MILLIGRAM
     Route: 065

REACTIONS (3)
  - MYOCARDITIS [None]
  - RASH [None]
  - NECK PAIN [None]
